FAERS Safety Report 14248161 (Version 2)
Quarter: 2017Q4

REPORT INFORMATION
  Report Type: Spontaneous
  Country: US (occurrence: US)
  Receive Date: 20171204
  Receipt Date: 20171227
  Transmission Date: 20180321
  Serious: Yes (Other)
  Sender: FDA-Public Use
  Company Number: US-PFIZER INC-2017512082

PATIENT
  Age: 81 Year
  Sex: Male

DRUGS (2)
  1. ATROPINE SULFATE/DIPHENOXYLATE HYDROCHLORIDE [Suspect]
     Active Substance: ATROPINE SULFATE\DIPHENOXYLATE HYDROCHLORIDE
     Dosage: 2 DF, 4X/DAY
     Route: 048
     Dates: start: 20171108
  2. ATROPINE SULFATE/DIPHENOXYLATE HYDROCHLORIDE [Suspect]
     Active Substance: ATROPINE SULFATE\DIPHENOXYLATE HYDROCHLORIDE
     Indication: DIARRHOEA
     Dosage: UNK

REACTIONS (7)
  - Fatigue [Unknown]
  - Dyspnoea [Unknown]
  - Hypersomnia [Unknown]
  - Respiratory depression [Unknown]
  - Drug ineffective [Unknown]
  - Flushing [Unknown]
  - Infection [Unknown]
